FAERS Safety Report 23739332 (Version 2)
Quarter: 2024Q2

REPORT INFORMATION
  Report Type: Report from Study
  Country: CO (occurrence: CO)
  Receive Date: 20240413
  Receipt Date: 20240511
  Transmission Date: 20240715
  Serious: Yes (Hospitalization, Other)
  Sender: FDA-Public Use
  Company Number: CO-ABBVIE-5715018

PATIENT
  Sex: Male
  Weight: 63 kg

DRUGS (3)
  1. BOTOX [Suspect]
     Active Substance: ONABOTULINUMTOXINA
     Indication: Muscle spasticity
     Dosage: TIME INTERVAL: AS NECESSARY: FORM STRENGTH-200 UNIT
     Route: 030
     Dates: start: 20220727, end: 20230727
  2. BOTOX [Suspect]
     Active Substance: ONABOTULINUMTOXINA
     Indication: Muscle spasticity
     Dosage: TIME INTERVAL: AS NECESSARY: FORM STRENGTH-200 UNIT
     Route: 030
     Dates: start: 20230913, end: 20230913
  3. BOTOX [Suspect]
     Active Substance: ONABOTULINUMTOXINA
     Indication: Muscle spasticity
     Dosage: TIME INTERVAL: AS NECESSARY: FORM STRENGTH-200 UNIT
     Route: 030
     Dates: start: 20220903, end: 20230903

REACTIONS (7)
  - Peritonitis [Unknown]
  - Liver disorder [Unknown]
  - Renal disorder [Unknown]
  - Pneumonia [Unknown]
  - Abdominal pain [Recovering/Resolving]
  - Pulmonary oedema [Unknown]
  - Mobility decreased [Unknown]

NARRATIVE: CASE EVENT DATE: 20240101
